FAERS Safety Report 26045298 (Version 1)
Quarter: 2025Q4

REPORT INFORMATION
  Report Type: Other
  Country: GB (occurrence: GB)
  Receive Date: 20251114
  Receipt Date: 20251114
  Transmission Date: 20260118
  Serious: Yes (Hospitalization, Disabling)
  Sender: ASPEN
  Company Number: GB-MLMSERVICE-20251030-PI692300-00117-1

PATIENT

DRUGS (1)
  1. DEXAMETHASONE [Suspect]
     Active Substance: DEXAMETHASONE
     Indication: Chronic obstructive pulmonary disease
     Dosage: 8 MILLIGRAM, QD (FIVE SEPARATE COURSES OF ORAL DEXAMETHASONE (8 MG DAILY FOR FIVE DAYS PER COURSE),
     Route: 048

REACTIONS (1)
  - Tendon rupture [Recovering/Resolving]
